FAERS Safety Report 5624916-3 (Version None)
Quarter: 2008Q1

REPORT INFORMATION
  Report Type: 
  Country: None (occurrence: None)
  Receive Date: 20080213
  Receipt Date: 20080205
  Transmission Date: 20080703
  Serious: Yes (Hospitalization, Other)
  Sender: FDA-Public Use
  Company Number: PHBS2008IT01796

PATIENT
  Age: 67 Year
  Sex: Female

DRUGS (6)
  1. HYDROCHLOROTHIAZIDE [Suspect]
     Indication: ATRIAL FIBRILLATION
  2. PROPAFENONE HCL [Suspect]
  3. WARFARIN SODIUM [Concomitant]
     Indication: ATRIAL FIBRILLATION
  4. DIGOXIN [Concomitant]
     Indication: ATRIAL FIBRILLATION
  5. FUROSEMIDE [Concomitant]
     Indication: ATRIAL FIBRILLATION
  6. RAMIPRIL [Concomitant]
     Indication: ATRIAL FIBRILLATION

REACTIONS (3)
  - PSORIASIS [None]
  - RASH [None]
  - RASH ERYTHEMATOUS [None]
